FAERS Safety Report 4427907-3 (Version None)
Quarter: 2004Q3

REPORT INFORMATION
  Report Type: 
  Country: None (occurrence: None)
  Receive Date: 20040813
  Receipt Date: 20040802
  Transmission Date: 20050211
  Serious: Yes (Death)
  Sender: FDA-Public Use
  Company Number: USA-2004-0015569

PATIENT
  Age: 42 Year
  Sex: Male

DRUGS (1)
  1. OXYCONTIN [Suspect]
     Indication: PAIN
     Dosage: 80 MG, PRN, ORAL
     Route: 048

REACTIONS (4)
  - CARDIAC FAILURE [None]
  - CARDIOMYOPATHY [None]
  - CARDIOTOXICITY [None]
  - SUDDEN DEATH [None]
